FAERS Safety Report 5083151-0 (Version None)
Quarter: 2006Q3

REPORT INFORMATION
  Report Type: 
  Country: None (occurrence: None)
  Receive Date: 20060724
  Receipt Date: 20031121
  Transmission Date: 20061208
  Serious: Yes (Hospitalization)
  Sender: FDA-Public Use
  Company Number: DRON00206001393

PATIENT
  Age: 51 Year
  Sex: Male

DRUGS (5)
  1. MARINOL [Suspect]
     Indication: MUSCLE SPASTICITY
     Dosage: 1 DOSAGE FORM BID ORAL DAILY DOSE: 1 DOSAGE FORM
     Route: 048
     Dates: start: 20020902, end: 20021206
  2. BACLOFEN [Concomitant]
     Indication: MULTIPLE SCLEROSIS
  3. CLONAZEPAM [Concomitant]
  4. DICLOFENAC (DICLOFENAC) [Concomitant]
  5. GABAPENTIN [Concomitant]

REACTIONS (4)
  - ARTHRALGIA [None]
  - ARTHRITIS [None]
  - MUSCLE SPASTICITY [None]
  - MUSCLE TIGHTNESS [None]
